FAERS Safety Report 12756340 (Version 4)
Quarter: 2017Q1

REPORT INFORMATION
  Report Type: Spontaneous
  Country: US (occurrence: US)
  Receive Date: 20160916
  Receipt Date: 20170216
  Transmission Date: 20170428
  Serious: No
  Sender: FDA-Public Use
  Company Number: US-RELYPSA-RLY2016002358

PATIENT
  Age: 66 Year
  Sex: Female

DRUGS (11)
  1. TYLENOL [Concomitant]
     Active Substance: ACETAMINOPHEN
  2. TRILEPTAL [Concomitant]
     Active Substance: OXCARBAZEPINE
  3. KAYEXALATE [Concomitant]
     Active Substance: SODIUM POLYSTYRENE SULFONATE
  4. RENVELA [Concomitant]
     Active Substance: SEVELAMER CARBONATE
  5. VELTASSA [Suspect]
     Active Substance: PATIROMER
     Indication: HYPERKALAEMIA
     Dosage: 8.4 G, QD
     Route: 048
     Dates: start: 20160622
  6. MAALOX ANTACID [Concomitant]
     Active Substance: ALUMINUM HYDROXIDE\DIMETHICONE\MAGNESIUM HYDROXIDE
  7. SIMVASTATIN. [Concomitant]
     Active Substance: SIMVASTATIN
  8. ZYPREXA [Concomitant]
     Active Substance: OLANZAPINE
  9. ATIVAN [Concomitant]
     Active Substance: LORAZEPAM
  10. TRICOR [Concomitant]
     Active Substance: FENOFIBRATE
  11. LABETALOL HCL [Concomitant]
     Active Substance: LABETALOL HYDROCHLORIDE

REACTIONS (2)
  - Inappropriate schedule of drug administration [Recovered/Resolved]
  - Drug dose omission [Not Recovered/Not Resolved]

NARRATIVE: CASE EVENT DATE: 2016
